FAERS Safety Report 21631967 (Version 1)
Quarter: 2022Q4

REPORT INFORMATION
  Report Type: Report from Study
  Country: US (occurrence: US)
  Receive Date: 20221123
  Receipt Date: 20221123
  Transmission Date: 20230113
  Serious: No
  Sender: FDA-Public Use
  Company Number: US-ABBVIE-4175812

PATIENT
  Sex: Male

DRUGS (1)
  1. SKYRIZI [Suspect]
     Active Substance: RISANKIZUMAB-RZAA
     Indication: Psoriasis
     Dosage: WEEK 0, WEEK 4, AND EVERY 12 WEEKS THEREAFTER?STRENGTH: 150 MILLIGRAMS
     Route: 058
     Dates: start: 20220728

REACTIONS (3)
  - Drug ineffective [Not Recovered/Not Resolved]
  - Skin irritation [Unknown]
  - Psoriasis [Unknown]
